FAERS Safety Report 7582517-4 (Version None)
Quarter: 2011Q2

REPORT INFORMATION
  Report Type: 
  Country: None (occurrence: None)
  Receive Date: 20110630
  Receipt Date: 20110622
  Transmission Date: 20111010
  Serious: Yes (Hospitalization)
  Sender: FDA-Public Use
  Company Number: RU-ASTELLAS-2011EU004132

PATIENT
  Age: 42 Year
  Sex: Female

DRUGS (2)
  1. MYCAMINE [Suspect]
     Indication: SYSTEMIC CANDIDA
     Dosage: 100 MG, UID/QD
     Route: 042
     Dates: start: 20110520, end: 20110522
  2. PREDNISONE [Concomitant]
     Indication: MESENTERITIS
     Dosage: 75 MG, UID/QD
     Route: 048
     Dates: start: 20101201

REACTIONS (3)
  - BLOOD CREATININE INCREASED [None]
  - CONFUSIONAL STATE [None]
  - JAUNDICE [None]
